FAERS Safety Report 18653786 (Version 1)
Quarter: 2020Q4

REPORT INFORMATION
  Report Type: Spontaneous
  Country: US (occurrence: US)
  Receive Date: 20201222
  Receipt Date: 20201222
  Transmission Date: 20210114
  Serious: Yes (Hospitalization)
  Sender: FDA-Public Use
  Company Number: None

PATIENT
  Age: 65 Year
  Sex: Female

DRUGS (11)
  1. AZITHROMYCIN ANHYDROUS. [Concomitant]
     Active Substance: AZITHROMYCIN ANHYDROUS
  2. VANCOMYCIN [Concomitant]
     Active Substance: VANCOMYCIN
  3. ONDANSETRON [Concomitant]
     Active Substance: ONDANSETRON
  4. CEPHALEXIN. [Concomitant]
     Active Substance: CEPHALEXIN
  5. METHOTREXATE. [Concomitant]
     Active Substance: METHOTREXATE
  6. HUMIRA [Suspect]
     Active Substance: ADALIMUMAB
     Indication: RHEUMATOID ARTHRITIS
     Dosage: ?          OTHER FREQUENCY:EVERY 10 DAYS;?
     Route: 058
     Dates: start: 20181203, end: 20201207
  7. CLOTRIMAZOLE. [Concomitant]
     Active Substance: CLOTRIMAZOLE
  8. LANSOPRAZOLE. [Concomitant]
     Active Substance: LANSOPRAZOLE
  9. METRONIDAZOL [Concomitant]
     Active Substance: METRONIDAZOLE
  10. MELOXICAM. [Concomitant]
     Active Substance: MELOXICAM
  11. AMOXICILLIN. [Concomitant]
     Active Substance: AMOXICILLIN

REACTIONS (2)
  - Infection [None]
  - Intentional dose omission [None]
